FAERS Safety Report 7875791-8 (Version None)
Quarter: 2011Q4

REPORT INFORMATION
  Report Type: 
  Country: None (occurrence: None)
  Receive Date: 20111031
  Receipt Date: 20111017
  Transmission Date: 20120403
  Serious: Yes (Other)
  Sender: FDA-Public Use
  Company Number: PHHY2011BR68000

PATIENT
  Age: 24 Year
  Sex: Female

DRUGS (4)
  1. DICLOFENAC SODIUM [Suspect]
     Indication: MIGRAINE
     Dosage: 50 MG, UNK
     Route: 054
  2. NARATRIPTAN [Concomitant]
     Indication: AURA
     Dosage: 1 DF, UNK
     Route: 048
  3. CATAFLAM [Suspect]
     Indication: MIGRAINE
     Dosage: UNK UKN, UNK
     Route: 048
  4. OMEPRAZOLE [Concomitant]
     Indication: MUCOSAL INFLAMMATION
     Dosage: UNK UKN, UNK

REACTIONS (4)
  - ANXIETY [None]
  - VOMITING [None]
  - MIGRAINE [None]
  - DEHYDRATION [None]
